FAERS Safety Report 9275610 (Version 1)
Quarter: 2013Q1

REPORT INFORMATION
  Report Type: Spontaneous
  Country: US (occurrence: None)
  Receive Date: 20130315
  Receipt Date: 20130315
  Transmission Date: 20140127
  Serious: Yes (Other)
  Sender: FDA-Public Use
  Company Number: 1302-187

PATIENT
  Age: 82 Year
  Sex: Female
  Weight: 58.97 kg

DRUGS (4)
  1. EYLEA (AFLIBERCEPT) (INJECTION) (ALFIBERCEPT) [Suspect]
     Indication: AGE-RELATED MACULAR DEGENERATION
     Dosage: 2 MG, 1 IN 2 M, INTRAVITREAL
     Route: 031
     Dates: start: 20121008
  2. THYROID (THYRORID) [Concomitant]
  3. METOPROLOL (METOPROLOL) [Concomitant]
  4. PREMPRO (PROVELLA--14) [Concomitant]

REACTIONS (2)
  - Visual acuity reduced [None]
  - Cataract [None]
